FAERS Safety Report 10443910 (Version 1)
Quarter: 2014Q3

REPORT INFORMATION
  Report Type: Spontaneous
  Country: US (occurrence: US)
  Receive Date: 20140910
  Receipt Date: 20140910
  Transmission Date: 20150326
  Serious: No
  Sender: FDA-Public Use
  Company Number: US-TARO-2013P1019488

PATIENT
  Sex: Female

DRUGS (4)
  1. WARFARIN SODIUM TABLETS USP 1MG [Suspect]
     Active Substance: WARFARIN SODIUM
     Dosage: 2 MG
     Dates: start: 2003
  2. METAMUCIL [Concomitant]
     Active Substance: PLANTAGO SEED
  3. WARFARIN SODIUM TABLETS USP 1MG [Suspect]
     Active Substance: WARFARIN SODIUM
     Dates: start: 2003
  4. AMLODIPINE [Suspect]
     Active Substance: AMLODIPINE BESYLATE
     Dates: end: 201308

REACTIONS (1)
  - Joint swelling [Recovering/Resolving]
